FAERS Safety Report 4771704-6 (Version None)
Quarter: 2005Q3

REPORT INFORMATION
  Report Type: 
  Country: None (occurrence: None)
  Receive Date: 20050916
  Receipt Date: 20050909
  Transmission Date: 20060218
  Serious: Yes (Hospitalization)
  Sender: FDA-Public Use
  Company Number: 200516530US

PATIENT
  Age: 61 Year
  Sex: Male
  Weight: 80 kg

DRUGS (12)
  1. LOVENOX [Suspect]
     Indication: DEEP VEIN THROMBOSIS
     Route: 058
     Dates: start: 20050901, end: 20050907
  2. COUMADIN [Concomitant]
     Indication: DEEP VEIN THROMBOSIS
     Route: 048
  3. ASPIRIN [Concomitant]
     Route: 048
     Dates: start: 20050909
  4. TRAZODONE [Concomitant]
  5. XANAX [Concomitant]
     Route: 048
  6. NITROGLYCERIN [Concomitant]
     Indication: CHEST PAIN
     Dosage: DOSE: 0.4 (PRN) SL
  7. DOCUSATE SODIUM [Concomitant]
     Dosage: DOSE: UNK
  8. LIPITOR [Concomitant]
     Route: 048
  9. METOPROLOL TARTRATE [Concomitant]
  10. PERCOCET-5 [Concomitant]
     Dosage: DOSE: UNK
  11. METHADONE HCL [Concomitant]
  12. PROTONIX [Concomitant]

REACTIONS (4)
  - ANGINA PECTORIS [None]
  - CHEST PAIN [None]
  - ELECTROCARDIOGRAM ST SEGMENT ELEVATION [None]
  - ELECTROCARDIOGRAM T WAVE INVERSION [None]
